FAERS Safety Report 13146311 (Version 1)
Quarter: 2017Q1

REPORT INFORMATION
  Report Type: Spontaneous
  Country: US (occurrence: US)
  Receive Date: 20170125
  Receipt Date: 20170125
  Transmission Date: 20170428
  Serious: No
  Sender: FDA-Public Use
  Company Number: US-009507513-1701USA005519

PATIENT

DRUGS (1)
  1. REBETOL [Suspect]
     Active Substance: RIBAVIRIN
     Indication: HEPATITIS C

REACTIONS (4)
  - Infection [Unknown]
  - Therapy non-responder [Unknown]
  - Viraemia [Unknown]
  - Blood HCV RNA below assay limit [Unknown]
